FAERS Safety Report 9444388 (Version 1)
Quarter: 2013Q3

REPORT INFORMATION
  Report Type: Spontaneous
  Country: US (occurrence: US)
  Receive Date: 20130807
  Receipt Date: 20130807
  Transmission Date: 20140515
  Serious: No
  Sender: FDA-Public Use
  Company Number: US-BAYER-2013-095420

PATIENT
  Age: 80 Year
  Sex: Female
  Weight: 54.42 kg

DRUGS (2)
  1. ALEVE CAPLET [Suspect]
     Indication: ANALGESIC THERAPY
     Dosage: 2 - 1  DF, BID
     Route: 048
     Dates: start: 201306
  2. BAYER ASPIRIN REGIMEN ADULT LOW STRENGTH [Suspect]
     Dosage: 1 DF, QD DAILY
     Route: 048
     Dates: start: 2008, end: 201306

REACTIONS (2)
  - Incorrect drug administration duration [None]
  - Incorrect drug administration duration [None]
